FAERS Safety Report 5715178-7 (Version None)
Quarter: 2008Q2

REPORT INFORMATION
  Report Type: 
  Country: None (occurrence: None)
  Receive Date: 20080423
  Receipt Date: 20080411
  Transmission Date: 20081010
  Serious: Yes (Hospitalization)
  Sender: FDA-Public Use
  Company Number: FR-ELI_LILLY_AND_COMPANY-FR200804003003

PATIENT
  Sex: Female

DRUGS (5)
  1. PROZAC [Suspect]
     Route: 048
     Dates: end: 20070706
  2. RISPERDAL [Concomitant]
     Dosage: 1 MG, UNK
     Route: 048
  3. STILNOX [Concomitant]
     Route: 048
  4. ZANIDIP [Concomitant]
     Route: 048
  5. RAMIPRIL [Concomitant]
     Route: 048

REACTIONS (9)
  - ACCIDENTAL OVERDOSE [None]
  - BLOOD CREATINE PHOSPHOKINASE INCREASED [None]
  - BLOOD SODIUM DECREASED [None]
  - CONFUSIONAL STATE [None]
  - DRUG INTOLERANCE [None]
  - EXTRAPYRAMIDAL DISORDER [None]
  - HEADACHE [None]
  - INCORRECT DOSE ADMINISTERED [None]
  - VOMITING [None]
